FAERS Safety Report 19073080 (Version 1)
Quarter: 2021Q1

REPORT INFORMATION
  Report Type: Spontaneous
  Country: US (occurrence: US)
  Receive Date: 20210330
  Receipt Date: 20210330
  Transmission Date: 20210420
  Serious: Yes (Death)
  Sender: FDA-Public Use
  Company Number: None

PATIENT
  Age: 80 Year
  Sex: Male

DRUGS (1)
  1. PROCRIT [Suspect]
     Active Substance: ERYTHROPOIETIN
     Indication: END STAGE RENAL DISEASE
     Dosage: ?          OTHER STRENGTH:10,000 U/ML;OTHER DOSE:10,000 UNITS;?
     Route: 058
     Dates: start: 20210212, end: 20210327

REACTIONS (1)
  - Death [None]

NARRATIVE: CASE EVENT DATE: 20210327
